FAERS Safety Report 6850393-0 (Version None)
Quarter: 2010Q3

REPORT INFORMATION
  Report Type: 
  Country: None (occurrence: None)
  Receive Date: 20100716
  Receipt Date: 20071016
  Transmission Date: 20110219
  Serious: No
  Sender: FDA-Public Use
  Company Number: US-PFIZER INC-2007088410

PATIENT
  Sex: Female
  Weight: 78.2 kg

DRUGS (3)
  1. CHANTIX [Suspect]
     Indication: SMOKING CESSATION THERAPY
     Dates: start: 20071015
  2. AMOXICILLIN [Suspect]
     Indication: NASOPHARYNGITIS
     Dates: start: 20071015
  3. PROVIGIL [Concomitant]

REACTIONS (1)
  - ABDOMINAL PAIN UPPER [None]
